APPROVED DRUG PRODUCT: PROPRANOLOL HYDROCHLORIDE
Active Ingredient: PROPRANOLOL HYDROCHLORIDE
Strength: 20MG
Dosage Form/Route: TABLET;ORAL
Application: A070379 | Product #001
Applicant: WATSON LABORATORIES INC
Approved: Mar 19, 1987 | RLD: No | RS: No | Type: DISCN